FAERS Safety Report 5413711-6 (Version None)
Quarter: 2007Q3

REPORT INFORMATION
  Report Type: 
  Country: None (occurrence: None)
  Receive Date: 20070814
  Receipt Date: 20070806
  Transmission Date: 20080115
  Serious: Yes (Other)
  Sender: FDA-Public Use
  Company Number: B0479158A

PATIENT
  Age: 57 Year
  Sex: Female

DRUGS (1)
  1. VENTODISKS [Suspect]
     Route: 065
     Dates: start: 20060901

REACTIONS (1)
  - ASTHMA [None]
